FAERS Safety Report 7104900-3 (Version None)
Quarter: 2010Q4

REPORT INFORMATION
  Report Type: 
  Country: None (occurrence: None)
  Receive Date: 20101116
  Receipt Date: 20101108
  Transmission Date: 20110411
  Serious: Yes (Hospitalization, Other)
  Sender: FDA-Public Use
  Company Number: US-ELI_LILLY_AND_COMPANY-US201002004009

PATIENT
  Sex: Female
  Weight: 90.703 kg

DRUGS (8)
  1. BYETTA [Suspect]
     Dosage: UNK, UNKNOWN
     Route: 065
     Dates: start: 20071201, end: 20080801
  2. BYETTA [Suspect]
     Dosage: UNK, UNKNOWN
     Dates: start: 20090801, end: 20100501
  3. LANTUS [Concomitant]
     Indication: DIABETES MELLITUS
     Dosage: UNK, UNK
     Dates: start: 20000101
  4. LOVASTATIN [Concomitant]
     Indication: LIPIDS
     Dosage: UNK, UNK
     Dates: start: 20000101
  5. METFORMIN HCL [Concomitant]
     Indication: DIABETES MELLITUS
     Dates: start: 20000101
  6. TYLENOL                                 /SCH/ [Concomitant]
     Indication: HEADACHE
     Dates: start: 20000101
  7. HYDROCHLOROTHIAZDE TAB [Concomitant]
     Indication: FLUID RETENTION
     Dates: start: 20000101
  8. GLYBURIDE [Concomitant]
     Indication: DIABETES MELLITUS
     Dates: start: 20000101

REACTIONS (3)
  - CHEST PAIN [None]
  - OFF LABEL USE [None]
  - PANCREATITIS [None]
